FAERS Safety Report 14586866 (Version 2)
Quarter: 2018Q1

REPORT INFORMATION
  Report Type: Spontaneous
  Country: CZ (occurrence: CZ)
  Receive Date: 20180301
  Receipt Date: 20180328
  Transmission Date: 20180509
  Serious: Yes (Hospitalization, Other)
  Sender: FDA-Public Use
  Company Number: CZ-AUROBINDO-AUR-APL-2017-40021

PATIENT
  Age: 77 Year

DRUGS (2)
  1. METFORMIN [Suspect]
     Active Substance: METFORMIN HYDROCHLORIDE
     Indication: PRODUCT USED FOR UNKNOWN INDICATION
     Dosage: DOSE-1700 ()
     Route: 048
  2. METFORMIN [Suspect]
     Active Substance: METFORMIN HYDROCHLORIDE
     Indication: TYPE 2 DIABETES MELLITUS
     Dosage: UNK ()
     Route: 065

REACTIONS (20)
  - Base excess decreased [Unknown]
  - Blood magnesium increased [Unknown]
  - Acute kidney injury [Unknown]
  - Lactic acidosis [Unknown]
  - Blood pH decreased [Unknown]
  - Blood chloride decreased [Unknown]
  - Hypocapnia [Unknown]
  - Gastrointestinal disorder [Unknown]
  - Metabolic acidosis [Unknown]
  - PCO2 decreased [Unknown]
  - Blood sodium decreased [Unknown]
  - Anion gap increased [Unknown]
  - Blood bicarbonate decreased [Unknown]
  - Blood creatinine increased [Unknown]
  - Toxicity to various agents [Unknown]
  - Blood phosphorus increased [Unknown]
  - PO2 increased [Unknown]
  - Creatinine renal clearance decreased [Unknown]
  - Hypovolaemia [Unknown]
  - Hyperkalaemia [Unknown]

NARRATIVE: CASE EVENT DATE: 2005
